FAERS Safety Report 8357946-1 (Version None)
Quarter: 2012Q2

REPORT INFORMATION
  Report Type: 
  Country: None (occurrence: None)
  Receive Date: 20120514
  Receipt Date: 20120503
  Transmission Date: 20120825
  Serious: Yes (Hospitalization, Other)
  Sender: FDA-Public Use
  Company Number: ES-JNJFOC-20080903722

PATIENT
  Age: 74 Year
  Sex: Female

DRUGS (10)
  1. NORVASC [Concomitant]
     Indication: HYPERTENSION
  2. NSAIDS [Concomitant]
  3. CALCIUM AND VITAMIN D [Concomitant]
  4. ARCOXIA [Concomitant]
     Indication: RHEUMATOID ARTHRITIS
     Route: 048
     Dates: start: 20071009
  5. ACFOL [Concomitant]
     Indication: RHEUMATOID ARTHRITIS
     Route: 048
     Dates: start: 19950101, end: 20080430
  6. REMICADE [Suspect]
     Indication: RHEUMATOID ARTHRITIS
     Dosage: DOSE OF 3 (UNITS NOT PROVIDED)
     Route: 042
     Dates: start: 20021213, end: 20080430
  7. MICARDIS HCT [Concomitant]
     Indication: HYPERTENSION
  8. PREDNISONE [Concomitant]
     Indication: RHEUMATOID ARTHRITIS
     Route: 048
     Dates: start: 20070312
  9. PRILOSEC [Concomitant]
     Indication: GASTROINTESTINAL DISORDER THERAPY
     Route: 048
     Dates: start: 19950101
  10. METHOTREXATE [Concomitant]
     Indication: RHEUMATOID ARTHRITIS
     Route: 048
     Dates: start: 19950101, end: 20080430

REACTIONS (1)
  - NON-HODGKIN'S LYMPHOMA [None]
